FAERS Safety Report 5317780-3 (Version None)
Quarter: 2007Q2

REPORT INFORMATION
  Report Type: 
  Country: None (occurrence: None)
  Receive Date: 20070502
  Receipt Date: 20070502
  Transmission Date: 20071010
  Serious: Yes (Other)
  Sender: FDA-Public Use
  Company Number: None

PATIENT
  Sex: Female
  Weight: 67.7 kg

DRUGS (5)
  1. AVASTIN [Suspect]
     Indication: ANGIOSARCOMA
     Dosage: 15 MG/KG/DAY EVERY 3 WEEKS IV HAD 3 CYCLES TOTAL
     Route: 042
     Dates: start: 20070329, end: 20070329
  2. TYLENOL [Concomitant]
  3. COUMADIN [Concomitant]
  4. CARDIZEM [Concomitant]
  5. DIGOXIN [Concomitant]

REACTIONS (2)
  - APHASIA [None]
  - TRANSIENT ISCHAEMIC ATTACK [None]
